FAERS Safety Report 7799508 (Version 3)
Quarter: 2013Q2

REPORT INFORMATION
  Report Type: Spontaneous
  Country: US (occurrence: US)
  Receive Date: 20110204
  Receipt Date: 20130430
  Transmission Date: 20140414
  Serious: Yes (Hospitalization, Other)
  Sender: FDA-Public Use
  Company Number: US-ROCHE-740779

PATIENT
  Age: 15 Year
  Sex: Female
  Weight: 52.2 kg

DRUGS (5)
  1. ACCUTANE [Suspect]
     Indication: ACNE
     Dosage: 40 MG AND 20 MG
     Route: 048
  2. ACCUTANE [Suspect]
     Route: 048
  3. ACCUTANE [Suspect]
     Route: 048
  4. ACCUTANE [Suspect]
     Route: 048
     Dates: start: 200101, end: 200103
  5. ORTHO TRI-CYCLEN [Concomitant]
     Indication: CONTRACEPTION

REACTIONS (9)
  - Small intestinal obstruction [Unknown]
  - Depression [Unknown]
  - Inflammatory bowel disease [Unknown]
  - Crohn^s disease [Unknown]
  - Blood triglycerides increased [Unknown]
  - Ear pain [Unknown]
  - Oropharyngeal pain [Unknown]
  - Chapped lips [Unknown]
  - Back pain [Unknown]
